FAERS Safety Report 15212089 (Version 1)
Quarter: 2018Q3

REPORT INFORMATION
  Report Type: Spontaneous
  Country: US (occurrence: US)
  Receive Date: 20180730
  Receipt Date: 20180730
  Transmission Date: 20181010
  Serious: No
  Sender: FDA-Public Use
  Company Number: US-ACCORD-065445

PATIENT
  Sex: Male

DRUGS (3)
  1. CARDURA [Concomitant]
     Active Substance: DOXAZOSIN MESYLATE
  2. BENAZEPRIL/BENAZEPRIL HYDROCHLORIDE [Concomitant]
     Dosage: AT MIDNIGHT AND AGAIN AT 6 AM
  3. DOXAZOSIN ACCORD [Suspect]
     Active Substance: DOXAZOSIN\DOXAZOSIN MESYLATE
     Indication: HYPERTENSION
     Dosage: STRENGTH: 8 MG IMMEDIATE RELEASE TABLET

REACTIONS (3)
  - Wrong technique in product usage process [Unknown]
  - Inappropriate schedule of drug administration [Unknown]
  - Drug effect incomplete [Unknown]
